FAERS Safety Report 6295482-7 (Version None)
Quarter: 2009Q3

REPORT INFORMATION
  Report Type: 
  Country: None (occurrence: None)
  Receive Date: 20090731
  Receipt Date: 20090721
  Transmission Date: 20100115
  Serious: Yes (Hospitalization)
  Sender: FDA-Public Use
  Company Number: BR-JNJFOC-20090707217

PATIENT
  Age: 66 Year
  Sex: Female
  Weight: 70 kg

DRUGS (1)
  1. DECITABINE (DECITABINE) LYOPHILIZED [Suspect]
     Indication: MYELODYSPLASTIC SYNDROME
     Dosage: 20 MG; INTRAVENOUS
     Route: 042
     Dates: start: 20090615, end: 20090629

REACTIONS (2)
  - HEADACHE [None]
  - INFUSION RELATED REACTION [None]
